FAERS Safety Report 4987236-6 (Version None)
Quarter: 2006Q2

REPORT INFORMATION
  Report Type: 
  Country: None (occurrence: None)
  Receive Date: 20060501
  Receipt Date: 20050829
  Transmission Date: 20061013
  Serious: Yes (Hospitalization)
  Sender: FDA-Public Use
  Company Number: US-MERCK-0508USA04744

PATIENT
  Age: 73 Year
  Sex: Male
  Weight: 82 kg

DRUGS (2)
  1. VIOXX [Suspect]
     Indication: ARTHRITIS
     Route: 048
     Dates: start: 20010101, end: 20020101
  2. ASPIRIN [Concomitant]
     Route: 065

REACTIONS (16)
  - ABDOMINAL PAIN [None]
  - AORTIC STENOSIS [None]
  - AORTIC VALVE STENOSIS [None]
  - ASTHENIA [None]
  - CEREBRAL DISORDER [None]
  - CEREBRAL INFARCTION [None]
  - CEREBROVASCULAR DISORDER [None]
  - CONFUSIONAL STATE [None]
  - DEHYDRATION [None]
  - DIARRHOEA [None]
  - DIVERTICULUM OESOPHAGEAL [None]
  - FUNGAL INFECTION [None]
  - IRON DEFICIENCY ANAEMIA [None]
  - OESOPHAGEAL OBSTRUCTION [None]
  - URINARY TRACT INFECTION [None]
  - VOMITING [None]
